FAERS Safety Report 4402965-0 (Version None)
Quarter: 2004Q3

REPORT INFORMATION
  Report Type: 
  Country: None (occurrence: None)
  Receive Date: 20040721
  Receipt Date: 20030717
  Transmission Date: 20050211
  Serious: No
  Sender: FDA-Public Use
  Company Number: US-GLAXOSMITHKLINE-A0417890A

PATIENT
  Age: 38 Year
  Sex: Female

DRUGS (15)
  1. IMITREX [Suspect]
     Indication: MIGRAINE
     Dosage: 100MG TWICE PER DAY
     Route: 048
     Dates: start: 20030620, end: 20030713
  2. IMITREX [Suspect]
     Dosage: 6MG AS REQUIRED
     Route: 058
     Dates: start: 20030620, end: 20030713
  3. SERZONE [Concomitant]
  4. ZYRTEC [Concomitant]
  5. SINGULAIR [Concomitant]
  6. ATIVAN [Concomitant]
  7. TOPAMAX [Concomitant]
  8. PROTONIX [Concomitant]
  9. FLONASE [Concomitant]
  10. PHENERGAN [Concomitant]
  11. ROBAXIN [Concomitant]
  12. MUSCLE RELAXANT [Concomitant]
  13. FLOVENT [Concomitant]
  14. ALBUTEROL [Concomitant]
  15. IPRATROPIUM BROMIDE [Concomitant]

REACTIONS (9)
  - ANXIETY [None]
  - BLOOD PRESSURE FLUCTUATION [None]
  - CHEST DISCOMFORT [None]
  - DYSPNOEA [None]
  - HEADACHE [None]
  - HYPOAESTHESIA [None]
  - PANIC ATTACK [None]
  - PARAESTHESIA [None]
  - SUFFOCATION FEELING [None]
